FAERS Safety Report 8210908-7 (Version None)
Quarter: 2012Q1

REPORT INFORMATION
  Report Type: 
  Country: None (occurrence: None)
  Receive Date: 20120315
  Receipt Date: 20120302
  Transmission Date: 20120608
  Serious: Yes (Other)
  Sender: FDA-Public Use
  Company Number: BR-RANBAXY-2012R5-53720

PATIENT

DRUGS (1)
  1. CEPHALEXIN [Suspect]
     Indication: URINARY TRACT INFECTION
     Dosage: 500 MG, QID
     Route: 048
     Dates: start: 20120228

REACTIONS (7)
  - INFLUENZA [None]
  - EYE SWELLING [None]
  - PRODUCT ODOUR ABNORMAL [None]
  - DRY MOUTH [None]
  - SECRETION DISCHARGE [None]
  - SINUSITIS [None]
  - PRODUCT PHYSICAL ISSUE [None]
